FAERS Safety Report 24556146 (Version 1)
Quarter: 2024Q4

REPORT INFORMATION
  Report Type: Spontaneous
  Country: FR (occurrence: FR)
  Receive Date: 20241028
  Receipt Date: 20241028
  Transmission Date: 20250115
  Serious: Yes (Other)
  Sender: SANOFI AVENTIS
  Company Number: FR-SA-2024SA307949

PATIENT
  Age: 74 Year
  Sex: Female

DRUGS (1)
  1. ENOXAPARIN SODIUM [Suspect]
     Active Substance: ENOXAPARIN SODIUM
     Indication: Thrombosis prophylaxis
     Dosage: 4000 IU, QD
     Route: 058

REACTIONS (7)
  - Adrenal cortex necrosis [Unknown]
  - Injection site necrosis [Unknown]
  - Skin necrosis [Unknown]
  - Pyrexia [Unknown]
  - Distributive shock [Recovered/Resolved]
  - Adrenal haemorrhage [Unknown]
  - Heparin-induced thrombocytopenia [Unknown]
